FAERS Safety Report 15559961 (Version 1)
Quarter: 2018Q4

REPORT INFORMATION
  Report Type: Spontaneous
  Country: US (occurrence: US)
  Receive Date: 20181027
  Receipt Date: 20181027
  Transmission Date: 20190205
  Serious: Yes (Other)
  Sender: FDA-Public Use
  Company Number: None

PATIENT
  Age: 56 Year
  Sex: Female
  Weight: 90 kg

DRUGS (28)
  1. ACIDOLPHILUS PROBIOTIC [Concomitant]
  2. COLLAGEN [Concomitant]
     Active Substance: COLLAGEN
  3. RANITIDINE. [Concomitant]
     Active Substance: RANITIDINE
  4. BENADRYL [Concomitant]
     Active Substance: DIPHENHYDRAMINE HYDROCHLORIDE
  5. KERATIN [Concomitant]
     Active Substance: KERATIN
  6. VP SHUNT [Concomitant]
  7. TRAMADOL. [Concomitant]
     Active Substance: TRAMADOL
  8. FOLIC ACID. [Concomitant]
     Active Substance: FOLIC ACID
  9. MAGNESIUM [Concomitant]
     Active Substance: MAGNESIUM
  10. METRONIDAZOLE 500 MG TAB UNIC [Suspect]
     Active Substance: METRONIDAZOLE
     Indication: INFECTION PROPHYLAXIS
     Dosage: ?          QUANTITY:1 TABLET(S);?
     Route: 048
     Dates: start: 20181026, end: 20181027
  11. NITROSTAT [Concomitant]
     Active Substance: NITROGLYCERIN
  12. FLONASE [Concomitant]
     Active Substance: FLUTICASONE PROPIONATE
  13. IBUPROFEN. [Concomitant]
     Active Substance: IBUPROFEN
  14. L-LYSINE [Concomitant]
     Active Substance: LYSINE
  15. AMBIEN [Concomitant]
     Active Substance: ZOLPIDEM TARTRATE
  16. ALBUTEROL. [Concomitant]
     Active Substance: ALBUTEROL
  17. EPIPEN [Concomitant]
     Active Substance: EPINEPHRINE
  18. MECLIZINE [Concomitant]
     Active Substance: MECLIZINE HYDROCHLORIDE
  19. FLAXSEED [Concomitant]
     Active Substance: FLAX SEED
  20. BETA CAROTENE [Concomitant]
  21. ROBAXIN [Concomitant]
     Active Substance: METHOCARBAMOL
  22. POTASSIUM [Concomitant]
     Active Substance: POTASSIUM
  23. NIACIN. [Concomitant]
     Active Substance: NIACIN
  24. BIOTIN [Concomitant]
     Active Substance: BIOTIN
  25. PROCTOSOL [Concomitant]
  26. TYLENOL [Concomitant]
     Active Substance: ACETAMINOPHEN
  27. T-3 [Concomitant]
  28. EQUATE DAILY FIBER [Concomitant]
     Active Substance: ACETAMINOPHEN\DOXYLAMINE SUCCINATE\PHENYLEPHRINE HYDROCHLORIDE\PSYLLIUM HUSK

REACTIONS (3)
  - Gait disturbance [None]
  - Fall [None]
  - Dizziness [None]

NARRATIVE: CASE EVENT DATE: 20181027
